FAERS Safety Report 16682239 (Version 1)
Quarter: 2019Q3

REPORT INFORMATION
  Report Type: Spontaneous
  Country: CN (occurrence: CN)
  Receive Date: 20190808
  Receipt Date: 20190808
  Transmission Date: 20191004
  Serious: Yes (Other)
  Sender: FDA-Public Use
  Company Number: CN-ROCHE-2367892

PATIENT
  Age: 32 Year
  Sex: Female

DRUGS (15)
  1. HERCEPTIN [Suspect]
     Active Substance: TRASTUZUMAB
     Indication: MODIFIED RADICAL MASTECTOMY
     Route: 065
     Dates: start: 20180101
  2. EPIRUBICIN [Concomitant]
     Active Substance: EPIRUBICIN
     Indication: MODIFIED RADICAL MASTECTOMY
  3. HERCEPTIN [Suspect]
     Active Substance: TRASTUZUMAB
     Route: 065
     Dates: start: 20190110
  4. CAPECITABINE. [Suspect]
     Active Substance: CAPECITABINE
     Route: 065
     Dates: start: 20190110
  5. HERCEPTIN [Suspect]
     Active Substance: TRASTUZUMAB
     Route: 065
     Dates: start: 20180801
  6. CYCLOPHOSPHAMIDE. [Concomitant]
     Active Substance: CYCLOPHOSPHAMIDE
     Indication: BREAST CANCER
     Route: 065
     Dates: start: 20140301
  7. DOCETAXEL. [Concomitant]
     Active Substance: DOCETAXEL
     Indication: BREAST CANCER
     Route: 065
     Dates: start: 20140301
  8. DOCETAXEL. [Concomitant]
     Active Substance: DOCETAXEL
     Indication: MODIFIED RADICAL MASTECTOMY
     Route: 065
     Dates: start: 20180101
  9. HERCEPTIN [Suspect]
     Active Substance: TRASTUZUMAB
     Indication: BREAST CANCER
     Route: 065
     Dates: start: 20140301
  10. CAPECITABINE. [Suspect]
     Active Substance: CAPECITABINE
     Indication: MODIFIED RADICAL MASTECTOMY
     Route: 065
     Dates: start: 20180801
  11. EPIRUBICIN [Concomitant]
     Active Substance: EPIRUBICIN
     Indication: BREAST CANCER
     Route: 065
     Dates: start: 20140301
  12. CYCLOPHOSPHAMIDE. [Concomitant]
     Active Substance: CYCLOPHOSPHAMIDE
     Indication: MODIFIED RADICAL MASTECTOMY
  13. PYROTINIB [Concomitant]
     Active Substance: PYROTINIB
     Indication: BREAST CANCER
     Route: 065
     Dates: start: 20181201
  14. CAPECITABINE. [Suspect]
     Active Substance: CAPECITABINE
     Indication: BREAST CANCER
     Route: 065
     Dates: start: 20180101
  15. PYROTINIB [Concomitant]
     Active Substance: PYROTINIB
     Indication: MODIFIED RADICAL MASTECTOMY
     Route: 065
     Dates: start: 20190110

REACTIONS (4)
  - Vomiting [Unknown]
  - Dizziness [Unknown]
  - Pneumonia [Unknown]
  - Headache [Unknown]

NARRATIVE: CASE EVENT DATE: 201811
